FAERS Safety Report 5819509-9 (Version None)
Quarter: 2008Q3

REPORT INFORMATION
  Report Type: 
  Country: None (occurrence: None)
  Receive Date: 20080723
  Receipt Date: 20080714
  Transmission Date: 20090109
  Serious: Yes (Death, Life-Threatening)
  Sender: FDA-Public Use
  Company Number: PL-WYE-H03791908

PATIENT
  Sex: Female

DRUGS (2)
  1. CORDARONE [Suspect]
     Indication: ATRIAL FIBRILLATION
     Route: 042
     Dates: start: 20080304, end: 20080304
  2. CORDARONE [Suspect]
     Indication: ATRIAL FLUTTER

REACTIONS (5)
  - ATRIAL FIBRILLATION [None]
  - BLOOD PRESSURE IMMEASURABLE [None]
  - BRADYCARDIA [None]
  - CONDITION AGGRAVATED [None]
  - SHOCK [None]
